FAERS Safety Report 7549439-6 (Version None)
Quarter: 2011Q2

REPORT INFORMATION
  Report Type: 
  Country: None (occurrence: None)
  Receive Date: 20110615
  Receipt Date: 20040915
  Transmission Date: 20111010
  Serious: Yes (Hospitalization)
  Sender: FDA-Public Use
  Company Number: PHHO2004CA08223

PATIENT
  Sex: Male

DRUGS (4)
  1. ZOLOFT [Concomitant]
  2. CLOZARIL [Suspect]
     Indication: PSYCHOTIC DISORDER
     Dosage: 650 MG, QD
     Route: 048
     Dates: start: 20000706
  3. VALPROATE SODIUM [Concomitant]
  4. CLONAZEPAM [Concomitant]

REACTIONS (4)
  - PULMONARY MASS [None]
  - LUNG ABSCESS [None]
  - PNEUMONIA [None]
  - LOWER RESPIRATORY TRACT INFECTION [None]
